FAERS Safety Report 7308887-X (Version None)
Quarter: 2011Q1

REPORT INFORMATION
  Report Type: 
  Country: None (occurrence: None)
  Receive Date: 20110223
  Receipt Date: 20100330
  Transmission Date: 20110831
  Serious: No
  Sender: FDA-Public Use
  Company Number: US-NOVOPROD-306574

PATIENT
  Age: 59 Year
  Sex: Female

DRUGS (3)
  1. NOVOSEVEN RT [Suspect]
     Indication: FACTOR VIII DEFICIENCY
  2. NOVOSEVEN RT [Suspect]
     Indication: FACTOR V DEFICIENCY
     Dosage: UNK
     Route: 058
  3. NOVOSEVEN RT [Suspect]
     Indication: HAEMORRHAGE

REACTIONS (2)
  - PYREXIA [None]
  - CHILLS [None]
